FAERS Safety Report 25649066 (Version 1)
Quarter: 2025Q3

REPORT INFORMATION
  Report Type: Report from Study
  Country: US (occurrence: US)
  Receive Date: 20250806
  Receipt Date: 20250806
  Transmission Date: 20251021
  Serious: Yes (Hospitalization)
  Sender: EISAI
  Company Number: US-Eisai-EC-2025-194202

PATIENT
  Age: 65 Year
  Sex: Female

DRUGS (1)
  1. LENVIMA [Suspect]
     Active Substance: LENVATINIB
     Indication: Thyroid cancer
     Dosage: LENVIMA WILL BE DISPENSED AT REDUCED DOSE OF 14MG ON JUL/31/2025
     Dates: start: 202504

REACTIONS (4)
  - Thrombosis [Unknown]
  - Feeding disorder [Unknown]
  - Dysphagia [Unknown]
  - Productive cough [Unknown]

NARRATIVE: CASE EVENT DATE: 20250401
